FAERS Safety Report 4360230-4 (Version None)
Quarter: 2004Q2

REPORT INFORMATION
  Report Type: 
  Country: None (occurrence: None)
  Receive Date: 20040513
  Receipt Date: 20040507
  Transmission Date: 20050107
  Serious: Yes (Hospitalization, Other)
  Sender: FDA-Public Use
  Company Number: NLWYE724526APR04

PATIENT
  Age: 58 Year
  Sex: Male

DRUGS (9)
  1. RAPAMUNE [Suspect]
     Dosage: SEE IMAGE
     Route: 048
     Dates: start: 20040211, end: 20040211
  2. RAPAMUNE [Suspect]
     Dosage: SEE IMAGE
     Route: 048
     Dates: start: 20040212, end: 20040413
  3. RAPAMUNE [Suspect]
     Dosage: SEE IMAGE
     Route: 048
     Dates: start: 20040413
  4. ENALAPRIL MALEATE [Concomitant]
  5. DILTIAZEM HYDROCHLORIDE [Concomitant]
  6. ASCAL (ACETYLSALICYLATE CALCIUM) [Concomitant]
  7. HYDROCHLOROTHIAZIDE [Concomitant]
  8. RANITIDINE [Concomitant]
  9. SELEKTINE (PRAVASTATIN SODIUM) [Concomitant]

REACTIONS (2)
  - DEHYDRATION [None]
  - DIARRHOEA [None]
